FAERS Safety Report 8386593-0 (Version None)
Quarter: 2012Q2

REPORT INFORMATION
  Report Type: 
  Country: None (occurrence: None)
  Receive Date: 20120525
  Receipt Date: 20111213
  Transmission Date: 20120825
  Serious: No
  Sender: FDA-Public Use
  Company Number: US-GLAXOSMITHKLINE-A0958001A

PATIENT
  Age: 38 Year
  Sex: Male

DRUGS (5)
  1. RICOLA [Concomitant]
  2. AZITHROMYCIN [Concomitant]
  3. PROMETHAZINE [Concomitant]
  4. VERAMYST [Suspect]
     Indication: HYPERSENSITIVITY
     Dosage: 27.5MCG UNKNOWN
     Route: 045
     Dates: start: 20111205, end: 20111209
  5. CLARITIN [Concomitant]

REACTIONS (3)
  - THROAT IRRITATION [None]
  - OROPHARYNGEAL PAIN [None]
  - PHARYNGITIS [None]
